FAERS Safety Report 21741663 (Version 2)
Quarter: 2022Q4

REPORT INFORMATION
  Report Type: Report from Study
  Country: IT (occurrence: IT)
  Receive Date: 20221216
  Receipt Date: 20221219
  Transmission Date: 20230113
  Serious: Yes (Hospitalization)
  Sender: FDA-Public Use
  Company Number: None

PATIENT
  Age: 41 Year
  Sex: Female

DRUGS (1)
  1. CYTOTEC [Suspect]
     Active Substance: MISOPROSTOL
     Indication: Cervical dilatation
     Dosage: 600 UG, SINGLE
     Route: 060
     Dates: start: 20221118, end: 20221118

REACTIONS (1)
  - Uterine hyperstimulation [Recovered/Resolved]

NARRATIVE: CASE EVENT DATE: 20221118
